FAERS Safety Report 7536010-5 (Version None)
Quarter: 2011Q2

REPORT INFORMATION
  Report Type: 
  Country: None (occurrence: None)
  Receive Date: 20110609
  Receipt Date: 20110606
  Transmission Date: 20111010
  Serious: No
  Sender: FDA-Public Use
  Company Number: US-PFIZER INC-2011122376

PATIENT

DRUGS (1)
  1. DETROL LA [Suspect]
     Dosage: 4 MG, 1X/DAY

REACTIONS (1)
  - DRUG INEFFECTIVE [None]
